FAERS Safety Report 5771512-3 (Version None)
Quarter: 2008Q2

REPORT INFORMATION
  Report Type: 
  Country: None (occurrence: None)
  Receive Date: 20080611
  Receipt Date: 20080529
  Transmission Date: 20081010
  Serious: Yes (Hospitalization)
  Sender: FDA-Public Use
  Company Number: 230014J08IRL

PATIENT
  Sex: Male

DRUGS (2)
  1. REBIF [Suspect]
     Indication: MULTIPLE SCLEROSIS
     Dosage: 44 MCG, 3 IN 1 WEEKS, SUBCUTANEOUS
     Route: 058
     Dates: start: 20030828
  2. VALPROATE SODIUM [Concomitant]

REACTIONS (4)
  - ALCOHOL USE [None]
  - CONDITION AGGRAVATED [None]
  - GRAND MAL CONVULSION [None]
  - STATUS EPILEPTICUS [None]
